FAERS Safety Report 10963448 (Version 1)
Quarter: 2015Q1

REPORT INFORMATION
  Report Type: Spontaneous
  Country: US (occurrence: None)
  Receive Date: 20150327
  Receipt Date: 20150327
  Transmission Date: 20150721
  Serious: Yes (Other)
  Sender: FDA-Public Use
  Company Number: None

PATIENT
  Age: 57 Year
  Sex: Male
  Weight: 95.6 kg

DRUGS (2)
  1. IFOSFAMIDE. [Suspect]
     Active Substance: IFOSFAMIDE
  2. MESNA. [Suspect]
     Active Substance: MESNA

REACTIONS (2)
  - Underdose [None]
  - Device infusion issue [None]

NARRATIVE: CASE EVENT DATE: 20150117
